FAERS Safety Report 7763065-5 (Version None)
Quarter: 2011Q3

REPORT INFORMATION
  Report Type: 
  Country: None (occurrence: None)
  Receive Date: 20110920
  Receipt Date: 20110920
  Transmission Date: 20111222
  Serious: Yes (Death)
  Sender: FDA-Public Use
  Company Number: JP-PFIZER INC-2011203888

PATIENT
  Age: 88 Year
  Sex: Male

DRUGS (4)
  1. NORPACE [Suspect]
     Indication: ARRHYTHMIA
     Dosage: 200 MG, DAILY
     Route: 048
  2. SEROQUEL [Concomitant]
     Dosage: 25 MG, DAILY
     Route: 048
  3. URUSOTORAN [Concomitant]
     Dosage: 300 MG, DAILY
     Route: 048
  4. VERAPAMIL HCL [Concomitant]
     Dosage: 120 MG, DAILY
     Route: 048

REACTIONS (2)
  - HYPOGLYCAEMIA [None]
  - LOSS OF CONSCIOUSNESS [None]
